FAERS Safety Report 8755925 (Version 2)
Quarter: 2012Q4

REPORT INFORMATION
  Report Type: Spontaneous
  Country: ES (occurrence: None)
  Receive Date: 20120813
  Receipt Date: 20120821
  Transmission Date: 20130627
  Serious: No
  Sender: FDA-Public Use
  Company Number: 2012RR-58818

PATIENT
  Age: 49 Year
  Sex: Male

DRUGS (6)
  1. GABAPENTIN [Suspect]
     Indication: LOW BACK PAIN
     Route: 048
  2. PAROXETINE [Concomitant]
  3. MIANSERIN [Concomitant]
  4. DISULFIRAM [Concomitant]
  5. EPROSARTAN [Concomitant]
  6. BISOPROLOL [Concomitant]

REACTIONS (10)
  - Renal failure acute [None]
  - Rhabdomyolysis [None]
  - Encephalopathy [None]
  - Dialysis [None]
  - Drug screen positive [None]
  - Metabolic acidosis [None]
  - Myalgia [None]
  - General physical health deterioration [None]
  - Hypotension [None]
  - Hyperkalaemia [None]
